FAERS Safety Report 5504775-X (Version None)
Quarter: 2007Q4

REPORT INFORMATION
  Report Type: 
  Country: None (occurrence: None)
  Receive Date: 20071031
  Receipt Date: 20071031
  Transmission Date: 20080405
  Serious: Yes (Hospitalization, Other)
  Sender: FDA-Public Use
  Company Number: None

PATIENT
  Age: 37 Year
  Sex: Female

DRUGS (1)
  1. IMITREX [Suspect]
     Indication: MIGRAINE

REACTIONS (6)
  - CRANIAL NERVE DISORDER [None]
  - EAR PAIN [None]
  - INFECTION [None]
  - LACRIMATION INCREASED [None]
  - NASAL DISCOMFORT [None]
  - VISION BLURRED [None]
